FAERS Safety Report 24776612 (Version 1)
Quarter: 2024Q4

REPORT INFORMATION
  Report Type: Spontaneous
  Country: IR (occurrence: IR)
  Receive Date: 20241226
  Receipt Date: 20241226
  Transmission Date: 20250115
  Serious: Yes (Hospitalization)
  Sender: MACLEODS
  Company Number: IR-MLMSERVICE-20241211-PI293824-00322-1

PATIENT

DRUGS (1)
  1. TRAMADOL [Suspect]
     Active Substance: TRAMADOL
     Indication: Premature ejaculation
     Dosage: INCREASED DAILY CONSUMPTION (3 TO 4 PILLS) OVER TWO WEEKS
     Route: 065

REACTIONS (2)
  - Mania [Recovered/Resolved]
  - Intentional product misuse [Recovered/Resolved]
